FAERS Safety Report 8132338-9 (Version None)
Quarter: 2012Q1

REPORT INFORMATION
  Report Type: 
  Country: None (occurrence: None)
  Receive Date: 20120207
  Receipt Date: 20120131
  Transmission Date: 20120608
  Serious: Yes (Other)
  Sender: FDA-Public Use
  Company Number: 2012MA001565

PATIENT
  Age: 29 Year
  Sex: Male

DRUGS (2)
  1. GLUCOSE MONOHYDRATE [Concomitant]
  2. RANITIDINE [Suspect]
     Route: 042

REACTIONS (3)
  - SKIN DISORDER [None]
  - URTICARIA [None]
  - DYSPNOEA [None]
